FAERS Safety Report 7338989-3 (Version None)
Quarter: 2011Q1

REPORT INFORMATION
  Report Type: 
  Country: None (occurrence: None)
  Receive Date: 20110228
  Receipt Date: 20110210
  Transmission Date: 20110831
  Serious: Yes (Hospitalization, Disabling, Other)
  Sender: FDA-Public Use
  Company Number: 2010P1003570

PATIENT
  Sex: Female

DRUGS (1)
  1. PHENYTOIN [Suspect]
     Indication: CONVULSION PROPHYLAXIS
     Dates: start: 20091228

REACTIONS (12)
  - PYREXIA [None]
  - TOXIC EPIDERMAL NECROLYSIS [None]
  - SKIN GRAFT [None]
  - STEVENS-JOHNSON SYNDROME [None]
  - ACTIVITIES OF DAILY LIVING IMPAIRED [None]
  - UNEVALUABLE EVENT [None]
  - ANXIETY [None]
  - FEAR [None]
  - ANHEDONIA [None]
  - BLINDNESS [None]
  - MENTAL DISORDER [None]
  - DEFORMITY [None]
